FAERS Safety Report 4654802-7 (Version None)
Quarter: 2005Q2

REPORT INFORMATION
  Report Type: 
  Country: None (occurrence: None)
  Receive Date: 20050506
  Receipt Date: 20050427
  Transmission Date: 20051028
  Serious: Yes (Other)
  Sender: FDA-Public Use
  Company Number: US-ROCHE-403443

PATIENT
  Sex: Male

DRUGS (2)
  1. PEGASYS [Suspect]
     Dosage: ROUTE: INJ
     Route: 050
  2. COPEGUS [Suspect]
     Route: 048

REACTIONS (2)
  - DEEP VEIN THROMBOSIS [None]
  - TREMOR [None]
